FAERS Safety Report 7298494-X (Version None)
Quarter: 2011Q1

REPORT INFORMATION
  Report Type: 
  Country: None (occurrence: None)
  Receive Date: 20110217
  Receipt Date: 20110211
  Transmission Date: 20110831
  Serious: Yes (Hospitalization, Other)
  Sender: FDA-Public Use
  Company Number: FR-BRISTOL-MYERS SQUIBB COMPANY-15551146

PATIENT
  Age: 58 Year
  Sex: Female

DRUGS (7)
  1. FORLAX [Concomitant]
  2. EFFEXOR [Interacting]
     Dosage: EFFEXOR 75 MG  1 DF:1 TABS
     Route: 048
     Dates: start: 20101203
  3. ELISOR [Concomitant]
     Route: 048
  4. CAPTOPRIL [Concomitant]
     Route: 048
  5. TENORMIN [Concomitant]
     Route: 048
  6. ABILIFY [Suspect]
     Indication: SLEEP DISORDER
     Dosage: 1 DF: 1 TABS
     Route: 048
     Dates: end: 20110120
  7. STILNOX [Interacting]
     Indication: SLEEP DISORDER
     Dosage: STILNOX 10MG 1 DF:1 FILM COATED SCORED TABLET
     Route: 048
     Dates: start: 20110106, end: 20110110

REACTIONS (5)
  - ANXIETY [None]
  - HYPERHIDROSIS [None]
  - HALLUCINATION [None]
  - DRUG INTERACTION [None]
  - AMNESIA [None]
